FAERS Safety Report 5917188-3 (Version None)
Quarter: 2008Q4

REPORT INFORMATION
  Report Type: 
  Country: None (occurrence: None)
  Receive Date: 20081014
  Receipt Date: 20081007
  Transmission Date: 20090506
  Serious: Yes (Life-Threatening, Hospitalization)
  Sender: FDA-Public Use
  Company Number: US-BRISTOL-MYERS SQUIBB COMPANY-14365787

PATIENT
  Age: 50 Year
  Sex: Male

DRUGS (2)
  1. PRINIVIL [Suspect]
     Indication: HYPERTENSION
     Route: 048
     Dates: start: 20060601, end: 20070829
  2. AVALIDE [Suspect]
     Indication: HYPERTENSION
     Dosage: 1 DF = TABS
     Route: 048
     Dates: start: 20060601, end: 20070830

REACTIONS (8)
  - CARDIAC FAILURE CONGESTIVE [None]
  - MULTI-ORGAN DISORDER [None]
  - MUSCLE SPASMS [None]
  - OEDEMA PERIPHERAL [None]
  - PNEUMONIA [None]
  - RENAL PAIN [None]
  - RESPIRATORY FAILURE [None]
  - VOMITING [None]
